FAERS Safety Report 4984195-7 (Version None)
Quarter: 2006Q2

REPORT INFORMATION
  Report Type: 
  Country: None (occurrence: None)
  Receive Date: 20060420
  Receipt Date: 20060414
  Transmission Date: 20061013
  Serious: Yes (Death, Other)
  Sender: FDA-Public Use
  Company Number: 2006049378

PATIENT
  Age: 40 Year
  Sex: Female

DRUGS (10)
  1. SILDENAFIL CITRATE [Suspect]
     Indication: PULMONARY HYPERTENSION
     Dosage: 240 MG (80 MG, 3 IN 1 D), ORAL
     Route: 048
     Dates: start: 20040801
  2. SILDENAFIL CITRATE [Suspect]
  3. FUROSEMIDE [Concomitant]
  4. SPIRONOLACTONE [Concomitant]
  5. FLUINDIONE [Concomitant]
  6. POTASSIUM CHLORIDE [Concomitant]
  7. LOPERAMIDE [Concomitant]
  8. OMEPRAZOLE [Concomitant]
  9. OXYGEN [Concomitant]
  10. FLOLAN [Concomitant]

REACTIONS (8)
  - ANOREXIA [None]
  - CARDIAC ARREST [None]
  - CIRCULATORY COLLAPSE [None]
  - CONVULSION [None]
  - FALL [None]
  - FATIGUE [None]
  - MALAISE [None]
  - SUDDEN DEATH [None]
